FAERS Safety Report 19982983 (Version 1)
Quarter: 2021Q4

REPORT INFORMATION
  Report Type: Spontaneous
  Country: US (occurrence: US)
  Receive Date: 20211021
  Receipt Date: 20211021
  Transmission Date: 20220303
  Serious: No
  Sender: FDA-Public Use
  Company Number: None

PATIENT
  Age: 69 Year
  Sex: Female
  Weight: 68.85 kg

DRUGS (2)
  1. OZEMPIC [Suspect]
     Active Substance: SEMAGLUTIDE
     Indication: Overweight
     Dosage: ?          QUANTITY:4 INJECTION(S);OTHER FREQUENCY:ONCE A WEEK;OTHER ROUTE:SUBCUTANEOUS INJECTION TO
     Dates: start: 20211009, end: 20211017
  2. RYBELSUS [Suspect]
     Active Substance: SEMAGLUTIDE

REACTIONS (4)
  - Diarrhoea [None]
  - Constipation [None]
  - Eructation [None]
  - Weight decreased [None]

NARRATIVE: CASE EVENT DATE: 20211009
